FAERS Safety Report 22388657 (Version 1)
Quarter: 2023Q2

REPORT INFORMATION
  Report Type: Spontaneous
  Country: CN (occurrence: CN)
  Receive Date: 20230531
  Receipt Date: 20230531
  Transmission Date: 20230722
  Serious: Yes (Hospitalization)
  Sender: FDA-Public Use
  Company Number: CN-STRIDES ARCOLAB LIMITED-2023SP007926

PATIENT
  Sex: Male

DRUGS (13)
  1. OLANZAPINE [Interacting]
     Active Substance: OLANZAPINE
     Indication: Somatic symptom disorder
     Dosage: UNK
     Route: 065
  2. OLANZAPINE [Interacting]
     Active Substance: OLANZAPINE
     Indication: Mental disorder
     Dosage: 10 MILLIGRAM PER DAY
     Route: 065
  3. OLANZAPINE [Interacting]
     Active Substance: OLANZAPINE
     Dosage: 20 MILLIGRAM PER DAY (GRADUALLY INCREASING )
     Route: 065
  4. OLANZAPINE [Interacting]
     Active Substance: OLANZAPINE
     Dosage: UNK (DOSE REDUCED)
     Route: 065
  5. BUSPIRONE HYDROCHLORIDE [Interacting]
     Active Substance: BUSPIRONE HYDROCHLORIDE
     Indication: Mental disorder
     Dosage: 15 MILLIGRAM PER DAY
     Route: 065
  6. BUSPIRONE HYDROCHLORIDE [Interacting]
     Active Substance: BUSPIRONE HYDROCHLORIDE
     Dosage: 30 MILLIGRAM PER DAY (DOSAGES GRADUALLY INCREASING )
     Route: 065
  7. BUSPIRONE HYDROCHLORIDE [Interacting]
     Active Substance: BUSPIRONE HYDROCHLORIDE
     Dosage: UNK (DOSE REDUCED)
     Route: 065
  8. TRAZODONE [Suspect]
     Active Substance: TRAZODONE HYDROCHLORIDE
     Indication: Somatic symptom disorder
     Dosage: UNK
     Route: 065
  9. DULOXETINE [Suspect]
     Active Substance: DULOXETINE
     Indication: Somatic symptom disorder
     Dosage: UNK
     Route: 065
  10. FLUVOXAMINE [Interacting]
     Active Substance: FLUVOXAMINE
     Indication: Mental disorder
     Dosage: 50 MILLIGRAM PER DAY
     Route: 065
  11. FLUVOXAMINE [Interacting]
     Active Substance: FLUVOXAMINE
     Dosage: 200 MILLIGRAM PER DAY (DOSAGES GRADUALLY INCREASING )
     Route: 065
  12. FLUVOXAMINE [Interacting]
     Active Substance: FLUVOXAMINE
     Dosage: UNK (REDUCED)
     Route: 065
  13. FLUVOXAMINE [Interacting]
     Active Substance: FLUVOXAMINE
     Dosage: UNK (REDUCED)
     Route: 065

REACTIONS (8)
  - Drug interaction [Unknown]
  - Blood prolactin increased [Recovered/Resolved]
  - Nausea [Recovered/Resolved]
  - Constipation [Recovered/Resolved]
  - Vomiting [Recovered/Resolved]
  - Drug level increased [Recovered/Resolved]
  - Therapy partial responder [Unknown]
  - Off label use [Unknown]
